FAERS Safety Report 15666167 (Version 3)
Quarter: 2019Q1

REPORT INFORMATION
  Report Type: Report from Study
  Country: US (occurrence: US)
  Receive Date: 20181128
  Receipt Date: 20190225
  Transmission Date: 20190417
  Serious: Yes (Hospitalization, Other)
  Sender: FDA-Public Use
  Company Number: US-GILEAD-2018-0376780

PATIENT
  Age: 20 Year
  Sex: Male

DRUGS (21)
  1. NADOLOL. [Concomitant]
     Active Substance: NADOLOL
  2. HUMALOG [Concomitant]
     Active Substance: INSULIN LISPRO
  3. LEVOFLOXACIN. [Concomitant]
     Active Substance: LEVOFLOXACIN
  4. PULMOZYME [Concomitant]
     Active Substance: DORNASE ALFA
  5. AZTREONAM LYSINE [Suspect]
     Active Substance: AZTREONAM LYSINE
     Indication: CYSTIC FIBROSIS
     Dosage: 75 MG
     Route: 055
     Dates: start: 20180404
  6. AZTREONAM LYSINE [Suspect]
     Active Substance: AZTREONAM LYSINE
     Dosage: 75 MG, TID VIA ALTERA NEBULIZER TID X28, OFF 28
     Route: 055
     Dates: start: 20180404
  7. VITAMIN D3 [Concomitant]
     Active Substance: CHOLECALCIFEROL
  8. VITAMIN E [Concomitant]
     Active Substance: .ALPHA.-TOCOPHEROL
  9. BASAGLAR [Concomitant]
     Active Substance: INSULIN GLARGINE
  10. FEROCON [Concomitant]
     Active Substance: FERROUS FUMARATE\FOLIC ACID\VITAMIN B COMPLEX
  11. VITAMIN D [Concomitant]
     Active Substance: CHOLECALCIFEROL
  12. FEROSUL [Concomitant]
  13. ALBUTEROL [SALBUTAMOL] [Concomitant]
     Active Substance: ALBUTEROL
  14. PANTOPRAZOLE [Concomitant]
     Active Substance: PANTOPRAZOLE
  15. POLYETHYLENE GLYCOL [Concomitant]
     Active Substance: POLYETHYLENE GLYCOLS
  16. DUONEB [Concomitant]
     Active Substance: ALBUTEROL SULFATE\IPRATROPIUM BROMIDE
  17. NEBUSAL [Concomitant]
     Active Substance: SODIUM CHLORIDE
  18. PHYTONADIONE. [Concomitant]
     Active Substance: PHYTONADIONE
  19. ZENPEP [Concomitant]
     Active Substance: PANCRELIPASE AMYLASE\PANCRELIPASE LIPASE\PANCRELIPASE PROTEASE
  20. VENTOLIN [Concomitant]
     Active Substance: ALBUTEROL SULFATE
  21. DOXYCYCLINE HYCLATE. [Concomitant]
     Active Substance: DOXYCYCLINE HYCLATE

REACTIONS (3)
  - Oesophageal haemorrhage [Not Recovered/Not Resolved]
  - Drug hypersensitivity [Unknown]
  - Haematochezia [Not Recovered/Not Resolved]

NARRATIVE: CASE EVENT DATE: 201811
